FAERS Safety Report 6172795-0 (Version None)
Quarter: 2009Q2

REPORT INFORMATION
  Report Type: 
  Country: None (occurrence: None)
  Receive Date: 20090428
  Receipt Date: 20090408
  Transmission Date: 20091009
  Serious: Yes (Life-Threatening, Hospitalization)
  Sender: FDA-Public Use
  Company Number: 8045205

PATIENT
  Age: 50 Year
  Sex: Female

DRUGS (11)
  1. KEPPRA [Suspect]
     Dosage: 500 MG 2/D PO
     Route: 048
     Dates: start: 20081213
  2. KEPPRA [Suspect]
     Dosage: 2000 MG 1/D PO
     Route: 048
     Dates: start: 20081231
  3. RISPERDAL [Suspect]
     Indication: SCHIZOPHRENIA, PARANOID TYPE
     Dosage: 2 MG 1/D PO
     Route: 048
     Dates: start: 20081114
  4. RISPERDAL [Suspect]
     Indication: SCHIZOPHRENIA, PARANOID TYPE
     Dosage: 6 MG 1/D PO
     Route: 048
     Dates: start: 20081124, end: 20090107
  5. RISPERDAL [Suspect]
     Indication: SCHIZOPHRENIA, PARANOID TYPE
     Dosage: 4 MG 1/D PO
     Route: 048
  6. RISPERDAL CONSTA [Suspect]
     Indication: SCHIZOPHRENIA, PARANOID TYPE
     Dosage: 25 MG ONCE IM
     Route: 030
     Dates: start: 20081210
  7. RISPERDAL CONSTA [Suspect]
     Indication: SCHIZOPHRENIA, PARANOID TYPE
     Dosage: 37.5 MG ONCE IM
     Route: 030
     Dates: start: 20081224
  8. RISPERDAL CONSTA [Suspect]
     Indication: SCHIZOPHRENIA, PARANOID TYPE
     Dosage: 50 MG ONCE IM
     Route: 030
     Dates: start: 20090121
  9. VALIUM [Concomitant]
  10. KEMADRIN [Concomitant]
  11. DALMADORM [Concomitant]

REACTIONS (7)
  - ALCOHOLISM [None]
  - COMA [None]
  - EPILEPSY [None]
  - HYPONATRAEMIA [None]
  - INSOMNIA [None]
  - PSYCHOTIC DISORDER [None]
  - SLEEP DISORDER [None]
